FAERS Safety Report 5085982-X (Version None)
Quarter: 2006Q3

REPORT INFORMATION
  Report Type: 
  Country: None (occurrence: None)
  Receive Date: 20060817
  Receipt Date: 20060803
  Transmission Date: 20061208
  Serious: Yes (Other)
  Sender: FDA-Public Use
  Company Number: 2006095932

PATIENT
  Age: 47 Year
  Sex: Female

DRUGS (4)
  1. SOLU-MEDROL [Suspect]
     Indication: MULTIPLE SCLEROSIS
     Dosage: INTRAVENOUS
     Route: 042
     Dates: start: 20050704, end: 20050707
  2. BRICANYL [Concomitant]
  3. PULMICORT [Concomitant]
  4. CIPROFLOXACIN [Concomitant]

REACTIONS (4)
  - BLOOD BILIRUBIN INCREASED [None]
  - JAUNDICE [None]
  - LIVER DISORDER [None]
  - TRANSAMINASES INCREASED [None]
